FAERS Safety Report 8154771-1 (Version None)
Quarter: 2012Q1

REPORT INFORMATION
  Report Type: 
  Country: None (occurrence: None)
  Receive Date: 20120221
  Receipt Date: 20120209
  Transmission Date: 20120608
  Serious: Yes (Other)
  Sender: FDA-Public Use
  Company Number: PHHY2011US55604

PATIENT
  Sex: Male
  Weight: 77.11 kg

DRUGS (6)
  1. PERCOCET [Concomitant]
  2. ZOCOR [Concomitant]
  3. GLEEVEC [Suspect]
     Indication: CHRONIC MYELOID LEUKAEMIA
     Dosage: 400 MG, DAILY
     Route: 048
     Dates: start: 20100510
  4. ASPIRIN [Concomitant]
  5. LISINOPRIL [Concomitant]
  6. SIMVASTATIN [Concomitant]

REACTIONS (3)
  - DIARRHOEA [None]
  - ACUTE GENERALISED EXANTHEMATOUS PUSTULOSIS [None]
  - HAEMATOCHEZIA [None]
